FAERS Safety Report 14410175 (Version 1)
Quarter: 2018Q1

REPORT INFORMATION
  Report Type: Spontaneous
  Country: US (occurrence: US)
  Receive Date: 20180116
  Receipt Date: 20180116
  Transmission Date: 20180509
  Serious: No
  Sender: FDA-Public Use
  Company Number: None

PATIENT
  Age: 58 Year
  Sex: Male

DRUGS (1)
  1. COSENTYX [Suspect]
     Active Substance: SECUKINUMAB
     Dosage: 150MG 300MG EVERY SQ
     Route: 058

REACTIONS (3)
  - Drug dose omission [None]
  - Influenza [None]
  - Therapy cessation [None]

NARRATIVE: CASE EVENT DATE: 20180105
